FAERS Safety Report 23735460 (Version 1)
Quarter: 2024Q2

REPORT INFORMATION
  Report Type: Spontaneous
  Country: AU (occurrence: AU)
  Receive Date: 20240412
  Receipt Date: 20240412
  Transmission Date: 20240716
  Serious: Yes (Other)
  Sender: FDA-Public Use
  Company Number: AU-TEVA-VS-3173475

PATIENT
  Age: 27 Year
  Sex: Male

DRUGS (7)
  1. ESOMEPRAZOLE [Suspect]
     Active Substance: ESOMEPRAZOLE
     Route: 065
  2. CLOZAPINE [Suspect]
     Active Substance: CLOZAPINE
     Route: 065
  3. METFORMIN HYDROCHLORIDE [Suspect]
     Active Substance: METFORMIN HYDROCHLORIDE
     Route: 065
  4. HALOPERIDOL [Suspect]
     Active Substance: HALOPERIDOL
     Route: 065
  5. CHOLECALCIFEROL [Suspect]
     Active Substance: CHOLECALCIFEROL
     Route: 065
  6. LINAGLIPTIN [Suspect]
     Active Substance: LINAGLIPTIN
     Route: 065
  7. ATORVASTATIN CALCIUM [Suspect]
     Active Substance: ATORVASTATIN CALCIUM
     Route: 065

REACTIONS (8)
  - Neutropenia [Unknown]
  - Blood cholesterol increased [Unknown]
  - Blood urea decreased [Unknown]
  - Cardiac disorder [Unknown]
  - Blood iron decreased [Unknown]
  - Coeliac disease [Unknown]
  - Drug level decreased [Unknown]
  - Tachycardia [Unknown]
